FAERS Safety Report 17742269 (Version 3)
Quarter: 2020Q2

REPORT INFORMATION
  Report Type: Report from Study
  Country: PL (occurrence: PL)
  Receive Date: 20200504
  Receipt Date: 20200522
  Transmission Date: 20200714
  Serious: Yes (Hospitalization)
  Sender: FDA-Public Use
  Company Number: PL-ROCHE-2140307

PATIENT
  Age: 37 Year
  Sex: Male
  Weight: 134 kg

DRUGS (11)
  1. LEVOTHYROXINE. [Concomitant]
     Active Substance: LEVOTHYROXINE
     Route: 048
     Dates: start: 20180911, end: 20181016
  2. ATEZOLIZUMAB. [Suspect]
     Active Substance: ATEZOLIZUMAB
     Indication: NEOPLASM
     Dosage: MOST RECENT DOSE PRIOR TO THE ONSET OF PNEUMONIA: 23/MAY/2018
     Route: 042
     Dates: start: 20171027, end: 20200218
  3. LEVOTHYROXINE. [Concomitant]
     Active Substance: LEVOTHYROXINE
     Route: 048
     Dates: start: 20190221
  4. CLARITHROMYCIN. [Concomitant]
     Active Substance: CLARITHROMYCIN
     Indication: UPPER RESPIRATORY TRACT INFECTION
     Route: 048
     Dates: start: 20181227, end: 20181229
  5. CEFUROXIME. [Concomitant]
     Active Substance: CEFUROXIME
     Indication: UPPER RESPIRATORY TRACT INFECTION
     Route: 048
     Dates: start: 20181230, end: 20190107
  6. LEVOTHYROXINE. [Concomitant]
     Active Substance: LEVOTHYROXINE
     Indication: HYPOTHYROIDISM
     Route: 048
     Dates: start: 20180904, end: 20180911
  7. GLUCOPHAGE XR [Concomitant]
     Active Substance: METFORMIN HYDROCHLORIDE
     Route: 048
     Dates: start: 202003
  8. LEVOTHYROXINE. [Concomitant]
     Active Substance: LEVOTHYROXINE
     Route: 048
     Dates: start: 20181017, end: 20190108
  9. LEVOTHYROXINE. [Concomitant]
     Active Substance: LEVOTHYROXINE
     Route: 048
     Dates: start: 20190109, end: 20190220
  10. BECLOMETHASONE [BECLOMETASONE] [Concomitant]
     Active Substance: BECLOMETHASONE
     Indication: COUGH
     Route: 045
     Dates: start: 20171220
  11. CEFUROXIME. [Concomitant]
     Active Substance: CEFUROXIME
     Indication: LOWER RESPIRATORY TRACT INFECTION
     Route: 048
     Dates: start: 20200128, end: 20200203

REACTIONS (2)
  - Pneumonia [Recovered/Resolved]
  - Radiation pneumonitis [Not Recovered/Not Resolved]

NARRATIVE: CASE EVENT DATE: 20180529
